FAERS Safety Report 10569880 (Version 1)
Quarter: 2014Q4

REPORT INFORMATION
  Report Type: Spontaneous
  Country: US (occurrence: US)
  Receive Date: 20141107
  Receipt Date: 20141107
  Transmission Date: 20150529
  Serious: No
  Sender: FDA-Public Use
  Company Number: US-009507513-1410USA007191

PATIENT
  Age: 38 Year
  Sex: Female

DRUGS (4)
  1. FOLLITROPIN BETA [Suspect]
     Active Substance: FOLLITROPIN
     Indication: PRODUCT USED FOR UNKNOWN INDICATION
     Dosage: 200 IU, UNK
     Dates: end: 20140925
  2. BRAVELLE [Concomitant]
     Active Substance: FOLLITROPIN\UROFOLLITROPIN
  3. MENOPUR [Concomitant]
     Active Substance: FOLLICLE STIMULATING HORMONE BETA POLYPEPTIDE\LUTROPIN ALFA
  4. FOLLISTIM AQ [Suspect]
     Active Substance: FOLLITROPIN
     Dosage: 200 IU, UNK
     Dates: end: 20140925

REACTIONS (2)
  - Device breakage [Unknown]
  - Incorrect drug administration duration [Unknown]

NARRATIVE: CASE EVENT DATE: 20140925
